FAERS Safety Report 11036116 (Version 3)
Quarter: 2015Q3

REPORT INFORMATION
  Report Type: Report from Study
  Country: CA (occurrence: CA)
  Receive Date: 20150415
  Receipt Date: 20150713
  Transmission Date: 20151125
  Serious: Yes (Hospitalization)
  Sender: FDA-Public Use
  Company Number: CA-TAKEDA-2015MPI002358

PATIENT

DRUGS (3)
  1. VELCADE [Suspect]
     Active Substance: BORTEZOMIB
     Indication: CARDIAC AMYLOIDOSIS
     Dosage: 1.3 MG/M2, UNK
     Route: 065
     Dates: start: 201503
  2. PREDNISONE                         /00044702/ [Concomitant]
     Active Substance: PREDNISONE
     Route: 065
  3. MELPHALAN [Concomitant]
     Active Substance: MELPHALAN
     Dosage: 12 MG, QD
     Route: 065

REACTIONS (2)
  - Injection site rash [Recovered/Resolved]
  - Cardiac disorder [Unknown]

NARRATIVE: CASE EVENT DATE: 201502
